FAERS Safety Report 10510587 (Version 1)
Quarter: 2014Q4

REPORT INFORMATION
  Report Type: Spontaneous
  Country: US (occurrence: None)
  Receive Date: 20141009
  Receipt Date: 20141009
  Transmission Date: 20150528
  Serious: Yes (Hospitalization)
  Sender: FDA-Public Use
  Company Number: None

PATIENT
  Age: 80 Year
  Sex: Female

DRUGS (1)
  1. CLONAZEPAM. [Suspect]
     Active Substance: CLONAZEPAM
     Dosage: MG PO
     Route: 048
     Dates: start: 20140827

REACTIONS (2)
  - Somnolence [None]
  - Confusional state [None]

NARRATIVE: CASE EVENT DATE: 20140825
